FAERS Safety Report 4554812-4 (Version None)
Quarter: 2005Q1

REPORT INFORMATION
  Report Type: 
  Country: None (occurrence: None)
  Receive Date: 20041227
  Receipt Date: 20040601
  Transmission Date: 20050727
  Serious: Yes (Other)
  Sender: FDA-Public Use
  Company Number: 2004-0007117

PATIENT
  Age: 38 Year
  Sex: Male
  Weight: 78.0187 kg

DRUGS (5)
  1. VIREAD [Suspect]
     Indication: HIV INFECTION
     Dosage: 300 MG, 1 IN 1 D, ORAL
     Route: 048
     Dates: start: 20020719
  2. EPIVIR [Concomitant]
  3. SUSTIVA [Concomitant]
  4. DIFLUCAN [Concomitant]
  5. MVI (MULTIVITAMINS) [Concomitant]

REACTIONS (2)
  - HBV DNA INCREASED [None]
  - VIRAL LOAD INCREASED [None]
